FAERS Safety Report 6672670-9 (Version None)
Quarter: 2010Q2

REPORT INFORMATION
  Report Type: 
  Country: None (occurrence: None)
  Receive Date: 20100408
  Receipt Date: 20100329
  Transmission Date: 20101027
  Serious: Yes (Other)
  Sender: FDA-Public Use
  Company Number: GB-ROCHE-652110

PATIENT

DRUGS (10)
  1. ZENAPAX [Suspect]
     Indication: GRAFT VERSUS HOST DISEASE
     Dosage: GIVEN ON DAYS 1, 4, 8, 15 AND 22
     Route: 042
  2. MYCOPHENOLATE MOFETIL [Suspect]
     Indication: PROPHYLAXIS AGAINST GRAFT VERSUS HOST DISEASE
     Route: 065
  3. REMICADE [Suspect]
     Indication: GRAFT VERSUS HOST DISEASE
     Dosage: GIVEN ON DAYS 1, 8, 15 AND 22
     Route: 042
  4. CYCLOSPORINE [Suspect]
     Indication: PROPHYLAXIS AGAINST GRAFT VERSUS HOST DISEASE
     Route: 065
  5. METHYLPREDNISOLONE [Suspect]
     Indication: GRAFT VERSUS HOST DISEASE
     Route: 065
  6. ACYCLOVIR SODIUM [Concomitant]
     Indication: INFECTION PROPHYLAXIS
  7. COTRIM [Concomitant]
     Indication: INFECTION PROPHYLAXIS
  8. ITRACONAZOLE [Concomitant]
     Indication: INFECTION PROPHYLAXIS
  9. GRANULOCYTE MACROPHAGE COLONY-STIMULATING FACTOR [Concomitant]
     Dosage: DRUG NAME: RECOMBINANT GRANULOCYTE MACROPHAGE COLONY-STIMULATING FACTOR
  10. PENICILLIN V [Concomitant]
     Indication: INFECTION PROPHYLAXIS

REACTIONS (1)
  - PANCYTOPENIA [None]
